FAERS Safety Report 19213054 (Version 3)
Quarter: 2021Q2

REPORT INFORMATION
  Report Type: Spontaneous
  Country: US (occurrence: US)
  Receive Date: 20210504
  Receipt Date: 20210604
  Transmission Date: 20210717
  Serious: Yes (Hospitalization, Other)
  Sender: FDA-Public Use
  Company Number: US-CATALYST PHARMACEUTICALS, INC-2021CAT00172

PATIENT
  Age: 77 Year
  Sex: Male
  Weight: 63.49 kg

DRUGS (16)
  1. LOVENOX [Suspect]
     Active Substance: ENOXAPARIN SODIUM
     Dosage: 40 MG, 1X/DAY
     Route: 058
  2. CALCIUM CITRATE [Concomitant]
     Active Substance: CALCIUM CITRATE
     Dosage: UNK
  3. IVIG [Concomitant]
     Active Substance: HUMAN IMMUNOGLOBULIN G
  4. AMLODIPINE [Concomitant]
     Active Substance: AMLODIPINE BESYLATE
     Dosage: UNK
  5. LISINOPRIL. [Concomitant]
     Active Substance: LISINOPRIL
     Dosage: 20 MG, 1X/DAY
     Dates: end: 202104
  6. HYDROCORTISONE. [Concomitant]
     Active Substance: HYDROCORTISONE
  7. ALENDRONATE [Concomitant]
     Active Substance: ALENDRONATE SODIUM
     Dosage: 10 MG, 1X/DAY
  8. MAGNESIUM GLUCONATE [Concomitant]
     Active Substance: MAGNESIUM GLUCONATE
  9. FIRDAPSE [Suspect]
     Active Substance: AMIFAMPRIDINE PHOSPHATE
     Indication: MYASTHENIC SYNDROME
     Dosage: 10 MG, 4X/DAY
     Route: 048
     Dates: start: 202103, end: 202104
  10. MULTIVITAMIN ADULT [Concomitant]
  11. TAMSULOSIN [Concomitant]
     Active Substance: TAMSULOSIN
  12. VITAMIN D [Concomitant]
     Active Substance: VITAMIN D NOS
     Dosage: 50000 U, 1X/MONTH
  13. FIRDAPSE [Suspect]
     Active Substance: AMIFAMPRIDINE PHOSPHATE
     Dosage: 10 MG, 2 TO 3 TIMES PER DAY
     Dates: start: 202104
  14. UNSPECIFIED HYPERTENSION MEDICATIONS [Concomitant]
  15. LIPITOR [Concomitant]
     Active Substance: ATORVASTATIN CALCIUM
  16. VITAMIN D [Concomitant]
     Active Substance: VITAMIN D NOS
     Dosage: 50000 U, 2X/WEEK

REACTIONS (8)
  - Pelvic fracture [Recovering/Resolving]
  - Thrombocytopenia [Recovering/Resolving]
  - Anaemia [Not Recovered/Not Resolved]
  - Mobility decreased [Not Recovered/Not Resolved]
  - Fall [Recovered/Resolved]
  - Gait disturbance [Not Recovered/Not Resolved]
  - Haematoma [Unknown]
  - Non-immune heparin associated thrombocytopenia [Recovering/Resolving]

NARRATIVE: CASE EVENT DATE: 202104
